FAERS Safety Report 8710270 (Version 5)
Quarter: 2012Q4

REPORT INFORMATION
  Report Type: 
  Country: US (occurrence: US)
  Receive Date: 20120807
  Receipt Date: 20121227
  Transmission Date: 20130627
  Serious: Yes (Hospitalization)
  Sender: FDA-Public Use
  Company Number: US-BIOGENIDEC-2012BI027902

PATIENT
  Age: 56 Year
  Sex: Female

DRUGS (2)
  1. AVONEX [Suspect]
     Indication: MULTIPLE SCLEROSIS
     Route: 030
     Dates: start: 20101021
  2. AVONEX [Suspect]
     Indication: MULTIPLE SCLEROSIS
     Route: 030
     Dates: start: 20101103

REACTIONS (12)
  - Sepsis [Not Recovered/Not Resolved]
  - Diabetes mellitus inadequate control [Not Recovered/Not Resolved]
  - Multiple sclerosis [Not Recovered/Not Resolved]
  - Laceration [Recovered/Resolved]
  - Cellulitis [Recovered/Resolved]
  - Erythema [Unknown]
  - Herpes zoster [Not Recovered/Not Resolved]
  - Immune system disorder [Unknown]
  - Nasopharyngitis [Unknown]
  - Laryngitis [Unknown]
  - Abasia [Recovered/Resolved]
  - Multiple sclerosis relapse [Unknown]
